FAERS Safety Report 8919108 (Version 3)
Quarter: 2013Q1

REPORT INFORMATION
  Report Type: Report from Study
  Country: US (occurrence: US)
  Receive Date: 20121121
  Receipt Date: 20130125
  Transmission Date: 20140127
  Serious: Yes (Hospitalization, Other)
  Sender: FDA-Public Use
  Company Number: US-ASTELLAS-2012US011286

PATIENT
  Age: 55 Year
  Sex: Female
  Weight: 36 kg

DRUGS (13)
  1. ERLOTINIB TABLET [Suspect]
     Indication: SQUAMOUS CELL CARCINOMA
     Dosage: 100 MG, UNKNOWN/D
     Route: 048
     Dates: start: 20120911
  2. PACLITAXEL [Suspect]
     Indication: SQUAMOUS CELL CARCINOMA
     Dosage: 70 MG/M2, UNKNOWN/D
     Route: 065
     Dates: start: 20120822
  3. CARBOPLATIN [Suspect]
     Indication: SQUAMOUS CELL CARCINOMA
     Dosage: 1.5 AUC  UNKNOWN/D
     Route: 065
     Dates: start: 20120822
  4. CETUXIMAB [Suspect]
     Indication: SQUAMOUS CELL CARCINOMA
     Dosage: 250 MG/M2, UNKNOWN/D
     Route: 065
     Dates: start: 20120822
  5. OXYCODONE [Concomitant]
     Indication: PRODUCT USED FOR UNKNOWN INDICATION
     Dosage: UNK
     Route: 065
     Dates: start: 201207
  6. SYNTHROID [Concomitant]
     Indication: PRODUCT USED FOR UNKNOWN INDICATION
     Dosage: 0.05 MG, UNKNOWN/D
     Route: 065
     Dates: start: 201207
  7. SYNTHROID [Concomitant]
     Dosage: 50 MG, UNKNOWN/D
     Route: 065
     Dates: start: 20120829
  8. ZOLPIDEM [Concomitant]
     Indication: PRODUCT USED FOR UNKNOWN INDICATION
     Dosage: 12.5 MG, UNKNOWN/D
     Route: 065
     Dates: start: 201207
  9. XOPENEX [Concomitant]
     Indication: PRODUCT USED FOR UNKNOWN INDICATION
     Dosage: 0.63/3 ML
     Route: 065
     Dates: start: 201207
  10. TYLENOL /00020001/ [Concomitant]
     Indication: PRODUCT USED FOR UNKNOWN INDICATION
     Dosage: 5/33 MG
     Route: 065
     Dates: start: 201207
  11. NEURONTIN [Concomitant]
     Indication: PRODUCT USED FOR UNKNOWN INDICATION
     Dosage: 200 MG, UNKNOWN/D
     Route: 065
     Dates: start: 20120822
  12. MORPHINE                           /00036302/ [Concomitant]
     Indication: PRODUCT USED FOR UNKNOWN INDICATION
     Dosage: 40 MG, PRN
     Route: 065
     Dates: start: 20120911
  13. FENTANYL                           /00174602/ [Concomitant]
     Indication: PRODUCT USED FOR UNKNOWN INDICATION
     Dosage: 250 MG, UNKNOWN/D
     Route: 065
     Dates: start: 20120911

REACTIONS (10)
  - Pulmonary embolism [Unknown]
  - Hypomagnesaemia [Unknown]
  - Hypokalaemia [Unknown]
  - Urticaria [Unknown]
  - Slow response to stimuli [Unknown]
  - Dyspnoea [Unknown]
  - Eyelid oedema [Unknown]
  - Hypersensitivity [Unknown]
  - Diarrhoea [Unknown]
  - Rash [Unknown]
